FAERS Safety Report 16974388 (Version 1)
Quarter: 2019Q4

REPORT INFORMATION
  Report Type: Spontaneous
  Country: US (occurrence: US)
  Receive Date: 20191030
  Receipt Date: 20191030
  Transmission Date: 20200122
  Serious: No
  Sender: FDA-Public Use
  Company Number: US-BAYER-2019-194725

PATIENT

DRUGS (4)
  1. VARENICLINE [Concomitant]
     Active Substance: VARENICLINE
     Dosage: UNK
     Route: 048
     Dates: start: 20191017
  2. IBUPROFEN. [Concomitant]
     Active Substance: IBUPROFEN
  3. CHANTIX [Concomitant]
     Active Substance: VARENICLINE TARTRATE
     Indication: NICOTINE DEPENDENCE
  4. ALEVE [Suspect]
     Active Substance: NAPROXEN SODIUM

REACTIONS (3)
  - Multiple allergies [None]
  - Multiple allergies [Unknown]
  - Abdominal discomfort [Unknown]

NARRATIVE: CASE EVENT DATE: 20161207
